FAERS Safety Report 5587250-6 (Version None)
Quarter: 2008Q1

REPORT INFORMATION
  Report Type: 
  Country: None (occurrence: None)
  Receive Date: 20080107
  Receipt Date: 20071225
  Transmission Date: 20080703
  Serious: Yes (Other)
  Sender: FDA-Public Use
  Company Number: 2007A001534

PATIENT

DRUGS (1)
  1. ACYCLOVIR [Suspect]
     Indication: PROPHYLAXIS
     Dosage: TRPL
     Route: 064

REACTIONS (2)
  - DRUG EXPOSURE DURING PREGNANCY [None]
  - NECROTISING ENTEROCOLITIS NEONATAL [None]
